FAERS Safety Report 10261869 (Version 1)
Quarter: 2014Q2

REPORT INFORMATION
  Report Type: Spontaneous
  Country: JP (occurrence: JP)
  Receive Date: 20140626
  Receipt Date: 20140626
  Transmission Date: 20141212
  Serious: Yes (Life-Threatening, Hospitalization)
  Sender: FDA-Public Use
  Company Number: PHHY2014JP076368

PATIENT
  Age: 61 Year
  Sex: Male

DRUGS (1)
  1. AMPICILLIN SODIUM+SULBACTAM SODIUM [Suspect]

REACTIONS (14)
  - Pulmonary haemorrhage [Recovered/Resolved]
  - Haemoptysis [Recovered/Resolved]
  - Dyspnoea [Recovered/Resolved]
  - Pulmonary alveolar haemorrhage [Recovered/Resolved]
  - Rales [Recovered/Resolved]
  - Coagulation factor deficiency [Recovered/Resolved]
  - Acute respiratory failure [Recovered/Resolved]
  - Petechiae [Recovered/Resolved]
  - Ecchymosis [Recovered/Resolved]
  - Prothrombin time prolonged [Recovered/Resolved]
  - Activated partial thromboplastin time prolonged [Recovered/Resolved]
  - Conjunctival pallor [Recovered/Resolved]
  - Normochromic normocytic anaemia [Recovered/Resolved]
  - Factor V inhibition [Recovering/Resolving]
